FAERS Safety Report 15737508 (Version 2)
Quarter: 2019Q3

REPORT INFORMATION
  Report Type: Spontaneous
  Country: FR (occurrence: FR)
  Receive Date: 20181219
  Receipt Date: 20190814
  Transmission Date: 20191004
  Serious: Yes (Hospitalization)
  Sender: FDA-Public Use
  Company Number: FR-SUN PHARMACEUTICAL INDUSTRIES LTD-2018RR-193691

PATIENT
  Age: 39 Year
  Sex: Male

DRUGS (1)
  1. TRAMADOL. [Suspect]
     Active Substance: TRAMADOL
     Indication: DRUG DEPENDENCE
     Dosage: 1500 MILLIGRAM
     Route: 048
     Dates: start: 20171102, end: 20171102

REACTIONS (2)
  - Seizure [Recovered/Resolved]
  - Poisoning deliberate [Recovered/Resolved]

NARRATIVE: CASE EVENT DATE: 20171102
